FAERS Safety Report 24416445 (Version 1)
Quarter: 2024Q4

REPORT INFORMATION
  Report Type: Spontaneous
  Country: US (occurrence: US)
  Receive Date: 20241009
  Receipt Date: 20241009
  Transmission Date: 20250115
  Serious: Yes (Hospitalization, Other)
  Sender: LUPIN
  Company Number: US-LUPIN PHARMACEUTICALS INC.-2024-09677

PATIENT
  Age: 66 Year
  Sex: Male

DRUGS (3)
  1. SILDENAFIL [Suspect]
     Active Substance: SILDENAFIL
     Indication: Pulmonary hypertension
     Dosage: 20 MILLIGRAM, TID (THREE TIMES DAILY)
     Route: 065
  2. TREPROSTINIL [Concomitant]
     Active Substance: TREPROSTINIL
     Indication: Pulmonary hypertension
     Dosage: UNK, QID (INHALED TREPROSTINIL FOUR TIMES DAILY)
  3. OXYGEN [Concomitant]
     Active Substance: OXYGEN
     Indication: Combined pulmonary fibrosis and emphysema
     Dosage: 2 LITER
     Route: 065

REACTIONS (1)
  - Acute psychosis [Recovered/Resolved]
